FAERS Safety Report 25878303 (Version 1)
Quarter: 2025Q4

REPORT INFORMATION
  Report Type: Other
  Country: EU (occurrence: EU)
  Receive Date: 20251003
  Receipt Date: 20251003
  Transmission Date: 20260119
  Serious: Yes (Hospitalization, Other)
  Sender: LYNE LABORATORIES
  Company Number: EU-Lyne Laboratories Inc.-2185865

PATIENT
  Age: 14 Year
  Sex: Male

DRUGS (8)
  1. DEXAMETHASONE [Suspect]
     Active Substance: DEXAMETHASONE
     Indication: B precursor type acute leukaemia
  2. VINCRISTINE SULFATE [Suspect]
     Active Substance: VINCRISTINE SULFATE
  3. METHOTREXATE [Suspect]
     Active Substance: METHOTREXATE
  4. THIOGUANINE [Suspect]
     Active Substance: THIOGUANINE
  5. CYTARABINE [Suspect]
     Active Substance: CYTARABINE
  6. CYCLOPHOSPHAMIDE [Suspect]
     Active Substance: CYCLOPHOSPHAMIDE
  7. PEGASPARGASE [Suspect]
     Active Substance: PEGASPARGASE
  8. DOXORUBICIN HYDROCHLORIDE [Suspect]
     Active Substance: DOXORUBICIN HYDROCHLORIDE

REACTIONS (3)
  - Neutropenia [Unknown]
  - Mucosal inflammation [Unknown]
  - Pneumonia viral [Unknown]
